FAERS Safety Report 22812936 (Version 7)
Quarter: 2025Q3

REPORT INFORMATION
  Report Type: Report from Study
  Country: CA (occurrence: CA)
  Receive Date: 20230811
  Receipt Date: 20250725
  Transmission Date: 20251021
  Serious: Yes (Hospitalization, Other)
  Sender: CELLTRION
  Company Number: CA-CELLTRION INC.-2020CA035299

PATIENT

DRUGS (135)
  1. TRASTUZUMAB [Suspect]
     Active Substance: TRASTUZUMAB
     Indication: HER2 positive breast cancer
     Route: 042
  2. TRASTUZUMAB [Suspect]
     Active Substance: TRASTUZUMAB
     Route: 042
  3. TRASTUZUMAB [Suspect]
     Active Substance: TRASTUZUMAB
     Route: 042
  4. TRASTUZUMAB [Suspect]
     Active Substance: TRASTUZUMAB
     Route: 042
  5. TRASTUZUMAB [Suspect]
     Active Substance: TRASTUZUMAB
     Route: 042
  6. TRASTUZUMAB [Suspect]
     Active Substance: TRASTUZUMAB
     Route: 042
  7. TRASTUZUMAB [Suspect]
     Active Substance: TRASTUZUMAB
     Route: 042
  8. TRASTUZUMAB [Suspect]
     Active Substance: TRASTUZUMAB
     Route: 042
  9. TRASTUZUMAB [Suspect]
     Active Substance: TRASTUZUMAB
     Route: 042
  10. TRASTUZUMAB [Suspect]
     Active Substance: TRASTUZUMAB
     Route: 042
  11. TRASTUZUMAB [Suspect]
     Active Substance: TRASTUZUMAB
     Route: 042
  12. TRASTUZUMAB [Suspect]
     Active Substance: TRASTUZUMAB
     Route: 065
  13. TRASTUZUMAB [Suspect]
     Active Substance: TRASTUZUMAB
     Route: 042
  14. TRASTUZUMAB [Suspect]
     Active Substance: TRASTUZUMAB
     Route: 065
  15. TRASTUZUMAB [Suspect]
     Active Substance: TRASTUZUMAB
     Route: 041
  16. TRASTUZUMAB [Suspect]
     Active Substance: TRASTUZUMAB
     Route: 041
  17. TRASTUZUMAB [Suspect]
     Active Substance: TRASTUZUMAB
     Route: 041
  18. TRASTUZUMAB [Suspect]
     Active Substance: TRASTUZUMAB
     Route: 041
  19. TRASTUZUMAB [Suspect]
     Active Substance: TRASTUZUMAB
     Route: 065
  20. TRASTUZUMAB [Suspect]
     Active Substance: TRASTUZUMAB
     Route: 042
  21. TRASTUZUMAB [Suspect]
     Active Substance: TRASTUZUMAB
     Route: 042
  22. TRASTUZUMAB [Suspect]
     Active Substance: TRASTUZUMAB
     Route: 042
  23. TRASTUZUMAB [Suspect]
     Active Substance: TRASTUZUMAB
     Route: 042
  24. TRASTUZUMAB [Suspect]
     Active Substance: TRASTUZUMAB
     Route: 042
  25. TRASTUZUMAB [Suspect]
     Active Substance: TRASTUZUMAB
     Route: 042
  26. TRASTUZUMAB [Suspect]
     Active Substance: TRASTUZUMAB
     Route: 042
  27. HUMAN IMMUNOGLOBULIN G [Suspect]
     Active Substance: HUMAN IMMUNOGLOBULIN G
     Indication: Product used for unknown indication
     Route: 042
  28. HUMAN IMMUNOGLOBULIN G [Suspect]
     Active Substance: HUMAN IMMUNOGLOBULIN G
     Indication: Product used for unknown indication
     Route: 065
  29. HUMAN IMMUNOGLOBULIN G [Suspect]
     Active Substance: HUMAN IMMUNOGLOBULIN G
     Route: 065
  30. KADCYLA [Suspect]
     Active Substance: ADO-TRASTUZUMAB EMTANSINE
     Indication: Breast cancer metastatic
     Route: 042
  31. KADCYLA [Suspect]
     Active Substance: ADO-TRASTUZUMAB EMTANSINE
     Route: 042
  32. KADCYLA [Suspect]
     Active Substance: ADO-TRASTUZUMAB EMTANSINE
     Route: 042
  33. KADCYLA [Suspect]
     Active Substance: ADO-TRASTUZUMAB EMTANSINE
     Route: 042
  34. KADCYLA [Suspect]
     Active Substance: ADO-TRASTUZUMAB EMTANSINE
     Route: 042
  35. KADCYLA [Suspect]
     Active Substance: ADO-TRASTUZUMAB EMTANSINE
     Indication: Breast cancer metastatic
     Route: 042
  36. KADCYLA [Suspect]
     Active Substance: ADO-TRASTUZUMAB EMTANSINE
     Route: 042
  37. KADCYLA [Suspect]
     Active Substance: ADO-TRASTUZUMAB EMTANSINE
     Route: 065
  38. KADCYLA [Suspect]
     Active Substance: ADO-TRASTUZUMAB EMTANSINE
     Indication: Breast cancer metastatic
     Route: 042
  39. KADCYLA [Suspect]
     Active Substance: ADO-TRASTUZUMAB EMTANSINE
     Route: 042
  40. KADCYLA [Suspect]
     Active Substance: ADO-TRASTUZUMAB EMTANSINE
     Route: 042
  41. KADCYLA [Suspect]
     Active Substance: ADO-TRASTUZUMAB EMTANSINE
     Route: 042
  42. KADCYLA [Suspect]
     Active Substance: ADO-TRASTUZUMAB EMTANSINE
     Route: 042
  43. KADCYLA [Suspect]
     Active Substance: ADO-TRASTUZUMAB EMTANSINE
     Route: 042
  44. KADCYLA [Suspect]
     Active Substance: ADO-TRASTUZUMAB EMTANSINE
     Route: 042
  45. KADCYLA [Suspect]
     Active Substance: ADO-TRASTUZUMAB EMTANSINE
     Route: 042
  46. KADCYLA [Suspect]
     Active Substance: ADO-TRASTUZUMAB EMTANSINE
     Indication: Breast cancer metastatic
     Route: 042
  47. KADCYLA [Suspect]
     Active Substance: ADO-TRASTUZUMAB EMTANSINE
     Route: 042
  48. KADCYLA [Suspect]
     Active Substance: ADO-TRASTUZUMAB EMTANSINE
     Route: 042
  49. PERJETA [Suspect]
     Active Substance: PERTUZUMAB
     Indication: Breast cancer metastatic
     Route: 042
  50. PERJETA [Suspect]
     Active Substance: PERTUZUMAB
     Route: 042
  51. PERJETA [Suspect]
     Active Substance: PERTUZUMAB
     Route: 042
  52. PERJETA [Suspect]
     Active Substance: PERTUZUMAB
     Route: 042
  53. PERJETA [Suspect]
     Active Substance: PERTUZUMAB
     Route: 042
  54. PERJETA [Suspect]
     Active Substance: PERTUZUMAB
     Route: 042
  55. PERJETA [Suspect]
     Active Substance: PERTUZUMAB
     Route: 042
  56. PERJETA [Suspect]
     Active Substance: PERTUZUMAB
     Route: 042
  57. PERJETA [Suspect]
     Active Substance: PERTUZUMAB
     Route: 042
  58. PERJETA [Suspect]
     Active Substance: PERTUZUMAB
     Indication: Breast cancer metastatic
     Route: 042
  59. PERJETA [Suspect]
     Active Substance: PERTUZUMAB
     Route: 042
  60. PERJETA [Suspect]
     Active Substance: PERTUZUMAB
     Route: 042
  61. PERJETA [Suspect]
     Active Substance: PERTUZUMAB
     Route: 042
  62. PERJETA [Suspect]
     Active Substance: PERTUZUMAB
     Route: 042
  63. PERJETA [Suspect]
     Active Substance: PERTUZUMAB
     Route: 042
  64. PERJETA [Suspect]
     Active Substance: PERTUZUMAB
     Indication: Breast cancer metastatic
     Route: 042
  65. PERJETA [Suspect]
     Active Substance: PERTUZUMAB
     Route: 042
  66. PERJETA [Suspect]
     Active Substance: PERTUZUMAB
     Route: 042
  67. PERJETA [Suspect]
     Active Substance: PERTUZUMAB
     Indication: Breast cancer metastatic
     Route: 042
  68. PERJETA [Suspect]
     Active Substance: PERTUZUMAB
     Route: 042
  69. PERJETA [Suspect]
     Active Substance: PERTUZUMAB
     Route: 042
  70. PERJETA [Suspect]
     Active Substance: PERTUZUMAB
     Route: 042
  71. PERJETA [Suspect]
     Active Substance: PERTUZUMAB
     Route: 042
  72. PERJETA [Suspect]
     Active Substance: PERTUZUMAB
     Route: 042
  73. PERJETA [Suspect]
     Active Substance: PERTUZUMAB
     Route: 042
  74. PERJETA [Suspect]
     Active Substance: PERTUZUMAB
     Route: 042
  75. PERJETA [Suspect]
     Active Substance: PERTUZUMAB
     Route: 042
  76. PERJETA [Suspect]
     Active Substance: PERTUZUMAB
     Route: 042
  77. PERJETA [Suspect]
     Active Substance: PERTUZUMAB
     Route: 042
  78. PERJETA [Suspect]
     Active Substance: PERTUZUMAB
     Route: 042
  79. PERJETA [Suspect]
     Active Substance: PERTUZUMAB
     Route: 042
  80. PERJETA [Suspect]
     Active Substance: PERTUZUMAB
     Route: 042
  81. PERJETA [Suspect]
     Active Substance: PERTUZUMAB
     Route: 042
  82. PERJETA [Suspect]
     Active Substance: PERTUZUMAB
     Route: 042
  83. PERJETA [Suspect]
     Active Substance: PERTUZUMAB
     Route: 042
  84. PERJETA [Suspect]
     Active Substance: PERTUZUMAB
     Route: 042
  85. PERJETA [Suspect]
     Active Substance: PERTUZUMAB
     Route: 042
  86. PERJETA [Suspect]
     Active Substance: PERTUZUMAB
     Route: 042
  87. PERJETA [Suspect]
     Active Substance: PERTUZUMAB
     Route: 042
  88. PERJETA [Suspect]
     Active Substance: PERTUZUMAB
     Route: 042
  89. PERJETA [Suspect]
     Active Substance: PERTUZUMAB
     Route: 042
  90. PERJETA [Suspect]
     Active Substance: PERTUZUMAB
     Route: 042
  91. PERJETA [Suspect]
     Active Substance: PERTUZUMAB
     Route: 042
  92. PERJETA [Suspect]
     Active Substance: PERTUZUMAB
     Route: 042
  93. PERJETA [Suspect]
     Active Substance: PERTUZUMAB
     Route: 042
  94. PERJETA [Suspect]
     Active Substance: PERTUZUMAB
     Route: 042
  95. PERJETA [Suspect]
     Active Substance: PERTUZUMAB
     Route: 042
  96. XELODA [Suspect]
     Active Substance: CAPECITABINE
     Indication: Product used for unknown indication
     Route: 048
  97. XELODA [Suspect]
     Active Substance: CAPECITABINE
     Indication: Product used for unknown indication
     Route: 065
  98. HEPARIN [Suspect]
     Active Substance: HEPARIN SODIUM
     Indication: Product used for unknown indication
     Route: 065
  99. HEPARIN SODIUM [Suspect]
     Active Substance: HEPARIN SODIUM
     Indication: Product used for unknown indication
     Route: 065
  100. HEPARIN SODIUM [Suspect]
     Active Substance: HEPARIN SODIUM
     Route: 042
  101. HEPARIN [Concomitant]
     Active Substance: HEPARIN SODIUM
     Indication: Flushing
     Route: 042
  102. HEPARIN [Concomitant]
     Active Substance: HEPARIN SODIUM
     Route: 042
  103. HEPARIN [Concomitant]
     Active Substance: HEPARIN SODIUM
  104. PACLITAXEL [Concomitant]
     Active Substance: PACLITAXEL
     Indication: Breast cancer
     Route: 065
  105. PACLITAXEL [Concomitant]
     Active Substance: PACLITAXEL
     Indication: Breast cancer
     Route: 065
  106. PACLITAXEL [Concomitant]
     Active Substance: PACLITAXEL
     Route: 065
  107. PACLITAXEL [Concomitant]
     Active Substance: PACLITAXEL
     Route: 065
  108. PACLITAXEL [Concomitant]
     Active Substance: PACLITAXEL
     Indication: Breast cancer
     Route: 065
  109. PACLITAXEL [Concomitant]
     Active Substance: PACLITAXEL
     Route: 065
  110. PACLITAXEL [Concomitant]
     Active Substance: PACLITAXEL
     Route: 065
  111. BENADRYL [Concomitant]
     Active Substance: DIPHENHYDRAMINE HYDROCHLORIDE
     Route: 042
  112. BENADRYL [Concomitant]
     Active Substance: DIPHENHYDRAMINE HYDROCHLORIDE
     Indication: Product used for unknown indication
     Route: 042
  113. BENADRYL [Concomitant]
     Active Substance: DIPHENHYDRAMINE HYDROCHLORIDE
     Route: 042
  114. MAGNESIUM [Concomitant]
     Active Substance: MAGNESIUM
     Indication: Premedication
     Route: 042
  115. MAGNESIUM [Concomitant]
     Active Substance: MAGNESIUM
     Indication: Premedication
  116. SOLU-MEDROL [Concomitant]
     Active Substance: METHYLPREDNISOLONE SODIUM SUCCINATE
     Indication: Product used for unknown indication
     Route: 042
  117. SOLU-MEDROL [Concomitant]
     Active Substance: METHYLPREDNISOLONE SODIUM SUCCINATE
     Route: 042
  118. SOLU-MEDROL [Concomitant]
     Active Substance: METHYLPREDNISOLONE SODIUM SUCCINATE
     Route: 042
  119. SOLU-MEDROL [Concomitant]
     Active Substance: METHYLPREDNISOLONE SODIUM SUCCINATE
     Route: 042
  120. TAXOL [Concomitant]
     Active Substance: PACLITAXEL
     Indication: Product used for unknown indication
     Route: 065
  121. TAXOL [Concomitant]
     Active Substance: PACLITAXEL
     Route: 065
  122. TAXOL [Concomitant]
     Active Substance: PACLITAXEL
     Route: 065
  123. TAXOL [Concomitant]
     Active Substance: PACLITAXEL
     Indication: Product used for unknown indication
     Route: 065
  124. TAXOL [Concomitant]
     Active Substance: PACLITAXEL
     Indication: Product used for unknown indication
     Route: 065
  125. TAXOL [Concomitant]
     Active Substance: PACLITAXEL
     Route: 065
  126. TAXOL [Concomitant]
     Active Substance: PACLITAXEL
     Route: 065
  127. TRAMADOL HYDROCHLORIDE [Concomitant]
     Active Substance: TRAMADOL HYDROCHLORIDE
     Indication: Product used for unknown indication
     Route: 065
  128. TRAMADOL HYDROCHLORIDE [Concomitant]
     Active Substance: TRAMADOL HYDROCHLORIDE
     Route: 065
  129. TRAZIMERA [Concomitant]
     Active Substance: TRASTUZUMAB-QYYP
  130. TRAMADOL HYDROCHLORIDE [Concomitant]
     Active Substance: TRAMADOL HYDROCHLORIDE
     Indication: Pain
     Route: 065
  131. TRAMADOL HYDROCHLORIDE [Concomitant]
     Active Substance: TRAMADOL HYDROCHLORIDE
     Indication: Pain
     Route: 065
  132. TRAMADOL HYDROCHLORIDE [Concomitant]
     Active Substance: TRAMADOL HYDROCHLORIDE
     Route: 065
  133. TRAMADOL HYDROCHLORIDE [Concomitant]
     Active Substance: TRAMADOL HYDROCHLORIDE
     Indication: Pain
     Route: 065
  134. METHYLPREDNISOLONE SODIUM SUCCINATE [Concomitant]
     Active Substance: METHYLPREDNISOLONE SODIUM SUCCINATE
     Route: 042
  135. CARBOPLATIN [Concomitant]
     Active Substance: CARBOPLATIN

REACTIONS (58)
  - Aphonia [Not Recovered/Not Resolved]
  - Blister [Not Recovered/Not Resolved]
  - Blood creatine phosphokinase increased [Not Recovered/Not Resolved]
  - Blood iron decreased [Not Recovered/Not Resolved]
  - Blood magnesium decreased [Not Recovered/Not Resolved]
  - Blood pressure diastolic decreased [Not Recovered/Not Resolved]
  - Blood pressure systolic decreased [Not Recovered/Not Resolved]
  - Blood test abnormal [Not Recovered/Not Resolved]
  - Breast disorder [Not Recovered/Not Resolved]
  - Decreased appetite [Not Recovered/Not Resolved]
  - Dry throat [Not Recovered/Not Resolved]
  - Dysmenorrhoea [Not Recovered/Not Resolved]
  - Eczema [Not Recovered/Not Resolved]
  - Electric shock sensation [Not Recovered/Not Resolved]
  - Faeces soft [Not Recovered/Not Resolved]
  - Food poisoning [Not Recovered/Not Resolved]
  - Gingival pain [Not Recovered/Not Resolved]
  - Hyperaesthesia [Not Recovered/Not Resolved]
  - Heart rate decreased [Not Recovered/Not Resolved]
  - Injection site haemorrhage [Not Recovered/Not Resolved]
  - Muscle disorder [Not Recovered/Not Resolved]
  - Muscular weakness [Not Recovered/Not Resolved]
  - Recurrent cancer [Not Recovered/Not Resolved]
  - Seasonal allergy [Not Recovered/Not Resolved]
  - Skin fissures [Not Recovered/Not Resolved]
  - Sneezing [Not Recovered/Not Resolved]
  - Stress [Not Recovered/Not Resolved]
  - Tumour marker increased [Not Recovered/Not Resolved]
  - Vascular access site haemorrhage [Not Recovered/Not Resolved]
  - Vulvovaginal pain [Not Recovered/Not Resolved]
  - Weight increased [Not Recovered/Not Resolved]
  - Sensitive skin [Not Recovered/Not Resolved]
  - Abdominal pain [Not Recovered/Not Resolved]
  - Asthenia [Not Recovered/Not Resolved]
  - Blood pressure decreased [Not Recovered/Not Resolved]
  - Constipation [Not Recovered/Not Resolved]
  - Dry mouth [Not Recovered/Not Resolved]
  - Dry skin [Not Recovered/Not Resolved]
  - Epistaxis [Not Recovered/Not Resolved]
  - Fatigue [Not Recovered/Not Resolved]
  - Hand dermatitis [Not Recovered/Not Resolved]
  - Headache [Not Recovered/Not Resolved]
  - Hepatitis [Not Recovered/Not Resolved]
  - Hypotension [Not Recovered/Not Resolved]
  - Malaise [Not Recovered/Not Resolved]
  - Malignant neoplasm progression [Not Recovered/Not Resolved]
  - Myalgia [Not Recovered/Not Resolved]
  - Nasopharyngitis [Not Recovered/Not Resolved]
  - Nausea [Not Recovered/Not Resolved]
  - Neoplasm progression [Not Recovered/Not Resolved]
  - Pain [Not Recovered/Not Resolved]
  - Palpitations [Not Recovered/Not Resolved]
  - Paraesthesia [Not Recovered/Not Resolved]
  - Pruritus [Not Recovered/Not Resolved]
  - Urinary tract infection [Not Recovered/Not Resolved]
  - Weight decreased [Not Recovered/Not Resolved]
  - Intentional product use issue [Unknown]
  - Underdose [Unknown]
